FAERS Safety Report 23147300 (Version 1)
Quarter: 2023Q4

REPORT INFORMATION
  Report Type: Other
  Country: GB (occurrence: GB)
  Receive Date: 20231106
  Receipt Date: 20231106
  Transmission Date: 20240110
  Serious: Yes (Disabling, Other)
  Sender: FDA-Public Use
  Company Number: None

PATIENT
  Age: 17 Year
  Sex: Female

DRUGS (1)
  1. SERTRALINE [Suspect]
     Active Substance: SERTRALINE HYDROCHLORIDE
     Indication: Anxiety
     Dosage: 50 MG, QD
     Route: 065

REACTIONS (8)
  - Hallucination [Recovering/Resolving]
  - Pupil fixed [Recovered/Resolved]
  - Hypoaesthesia [Recovered/Resolved]
  - Bruxism [Recovered/Resolved]
  - Tachycardia [Recovered/Resolved]
  - Mania [Recovered/Resolved]
  - Insomnia [Recovered/Resolved]
  - Panic attack [Recovering/Resolving]
